FAERS Safety Report 8989006 (Version 1)
Quarter: 2012Q4

REPORT INFORMATION
  Report Type: Spontaneous
  Country: IN (occurrence: None)
  Receive Date: 20121218
  Receipt Date: 20121218
  Transmission Date: 20130627
  Serious: Yes (Other)
  Sender: FDA-Public Use
  Company Number: DSA_61351_2012

PATIENT
  Age: 42 Year
  Sex: Male

DRUGS (4)
  1. METRONIDAZOLE (METRONIDAZOLE) [Suspect]
     Indication: PRODUCT USED FOR UNKNOWN INDICATION
     Dosage: (DF)
  2. MEBENDAZOLE [Suspect]
     Dosage: (DF)
  3. ALBENDAZOLE [Suspect]
     Dosage: (DF)
  4. ORNIDAZOLE [Suspect]
     Dosage: (DF)

REACTIONS (4)
  - Generalised anxiety disorder [None]
  - Drug abuse [None]
  - Abdominal discomfort [None]
  - Obsessive-compulsive personality disorder [None]
